FAERS Safety Report 15620053 (Version 1)
Quarter: 2018Q4

REPORT INFORMATION
  Report Type: Spontaneous
  Country: DE (occurrence: DE)
  Receive Date: 20181115
  Receipt Date: 20181115
  Transmission Date: 20190205
  Serious: Yes (Other)
  Sender: FDA-Public Use
  Company Number: DE-ACCORD-091883

PATIENT
  Age: 80 Year
  Sex: Female

DRUGS (6)
  1. ALENDRONIC ACID [Suspect]
     Active Substance: ALENDRONIC ACID
     Indication: PRODUCT USED FOR UNKNOWN INDICATION
     Dosage: UNK
     Route: 048
  2. PREDNISOLONE. [Concomitant]
     Active Substance: PREDNISOLONE
     Dosage: 2.5 MG, 2X/DAY
  3. ARCOXIA [Suspect]
     Active Substance: ETORICOXIB
     Indication: PRODUCT USED FOR UNKNOWN INDICATION
     Dosage: UNK
     Route: 048
  4. METHOTREXATE. [Suspect]
     Active Substance: METHOTREXATE
     Indication: RHEUMATOID ARTHRITIS
     Dosage: 15 MG, UNK
     Route: 058
     Dates: start: 20121204, end: 20150628
  5. ORENCIA [Concomitant]
     Active Substance: ABATACEPT
     Dosage: 125 MG, WEEKLY
  6. SECUKINUMAB. [Concomitant]
     Active Substance: SECUKINUMAB
     Dosage: 75 MG, MONTHLY
     Route: 058
     Dates: start: 20121204, end: 20150128

REACTIONS (9)
  - Drug intolerance [Unknown]
  - Rheumatoid nodule [Unknown]
  - Spinal fracture [Unknown]
  - Purulent discharge [Unknown]
  - Respiratory tract infection [Unknown]
  - Drug ineffective [Unknown]
  - Spondylolisthesis [Unknown]
  - Osteoarthritis [Unknown]
  - Spinal pain [Unknown]

NARRATIVE: CASE EVENT DATE: 20170322
